FAERS Safety Report 4475876-2 (Version None)
Quarter: 2004Q4

REPORT INFORMATION
  Report Type: 
  Country: None (occurrence: None)
  Receive Date: 20041012
  Receipt Date: 20041004
  Transmission Date: 20050328
  Serious: Yes (Hospitalization, Other)
  Sender: FDA-Public Use
  Company Number: 2004224710US

PATIENT
  Age: 83 Year
  Sex: Male
  Weight: 82.1 kg

DRUGS (8)
  1. BEXTRA [Suspect]
  2. MEMANTINE HCL [Suspect]
     Indication: DEMENTIA ALZHEIMER'S TYPE
  3. GALANTAMINE (GALANTAMINE) [Suspect]
     Indication: DEMENTIA ALZHEIMER'S TYPE
  4. COLCHICINE (COLCHICINE) [Concomitant]
  5. PRINZIDE [Concomitant]
  6. PANTOPRAZOLE [Concomitant]
  7. PRAVACHOL [Concomitant]
  8. ASASANTIN [Concomitant]

REACTIONS (8)
  - DEHYDRATION [None]
  - DRUG ERUPTION [None]
  - HYPOTENSION [None]
  - HYPOVOLAEMIA [None]
  - MALAISE [None]
  - PYREXIA [None]
  - RENAL FAILURE ACUTE [None]
  - SOMNOLENCE [None]
